FAERS Safety Report 10759575 (Version 1)
Quarter: 2015Q1

REPORT INFORMATION
  Report Type: Spontaneous
  Country: US (occurrence: US)
  Receive Date: 20150203
  Receipt Date: 20150203
  Transmission Date: 20150721
  Serious: Yes (Other)
  Sender: FDA-Public Use
  Company Number: US-GLAXOSMITHKLINE-US2015GSK013896

PATIENT
  Sex: Female

DRUGS (4)
  1. TOPAMAX [Suspect]
     Active Substance: TOPIRAMATE
     Indication: SEIZURE
     Dosage: UNK, U
     Route: 065
     Dates: end: 201411
  2. TRILEPTAL [Suspect]
     Active Substance: OXCARBAZEPINE
     Indication: PRODUCT USED FOR UNKNOWN INDICATION
     Dosage: UNK, U
     Route: 065
  3. LAMICTAL [Suspect]
     Active Substance: LAMOTRIGINE
     Indication: PRODUCT USED FOR UNKNOWN INDICATION
     Dosage: UNK, U
     Route: 065
  4. VIMPAT [Suspect]
     Active Substance: LACOSAMIDE
     Indication: SEIZURE
     Dosage: UNK, U
     Route: 065

REACTIONS (7)
  - Fear [Unknown]
  - Fall [Unknown]
  - Drug ineffective [Unknown]
  - Seizure [Unknown]
  - Emotional distress [Unknown]
  - Tremor [Unknown]
  - Therapeutic response unexpected [Unknown]
